FAERS Safety Report 9034422 (Version 1)
Quarter: 2013Q1

REPORT INFORMATION
  Report Type: Spontaneous
  Country: US (occurrence: None)
  Receive Date: 20130116
  Receipt Date: 20130116
  Transmission Date: 20140127
  Serious: No
  Sender: FDA-Public Use
  Company Number: None

PATIENT
  Age: 72 Year
  Sex: Male
  Weight: 70.9 kg

DRUGS (1)
  1. REVLIMID [Suspect]
     Indication: PLASMA CELL MYELOMA
     Dosage: 15MG DAYS 1-}14Q 21 DAYS ORAL
     Route: 048
     Dates: start: 201109, end: 201301

REACTIONS (4)
  - Weight decreased [None]
  - Decreased appetite [None]
  - Asthenia [None]
  - Rash generalised [None]
